FAERS Safety Report 22660502 (Version 1)
Quarter: 2023Q2

REPORT INFORMATION
  Report Type: Spontaneous
  Country: US (occurrence: US)
  Receive Date: 20230630
  Receipt Date: 20230630
  Transmission Date: 20230721
  Serious: No
  Sender: FDA-Public Use
  Company Number: US-JAZZ PHARMACEUTICALS-2022-US-024666

PATIENT
  Sex: Male

DRUGS (3)
  1. EPIDIOLEX [Suspect]
     Active Substance: CANNABIDIOL
     Indication: Product used for unknown indication
     Dosage: 2 ML DAILY FOR 2 WEEKS, THEN TAKE 2 ML TWICE A DAY THEREAFTER
     Route: 048
     Dates: start: 20220718
  2. VIMPAT [Concomitant]
     Active Substance: LACOSAMIDE
  3. BRIVIACT [Concomitant]
     Active Substance: BRIVARACETAM

REACTIONS (1)
  - Seizure [Unknown]
